FAERS Safety Report 20694993 (Version 1)
Quarter: 2022Q2

REPORT INFORMATION
  Report Type: Spontaneous
  Country: NL (occurrence: NL)
  Receive Date: 20220411
  Receipt Date: 20220411
  Transmission Date: 20220721
  Serious: Yes (Life-Threatening, Other)
  Sender: FDA-Public Use
  Company Number: None

PATIENT
  Sex: Female
  Weight: 100 kg

DRUGS (2)
  1. METRONIDAZOLE [Suspect]
     Active Substance: METRONIDAZOLE
     Indication: Gingivitis
     Dosage: 1500 MILLIGRAM DAILY; 3 X A DAY 1, FORM STRENGTH 500MG / BRAND NAME NOT SPECIFIED, THERAPY END DATE:
     Dates: start: 20220321
  2. ACENOCOUMAROL [Concomitant]
     Active Substance: ACENOCOUMAROL
     Dosage: FORM STRENGTH 1MG / BRAND NAME NOT SPECIFIED, THERAPY START DATE AND END DATE: ASKU

REACTIONS (2)
  - Hypertension [Unknown]
  - Headache [Unknown]
